FAERS Safety Report 4822968-1 (Version None)
Quarter: 2005Q4

REPORT INFORMATION
  Report Type: 
  Country: None (occurrence: None)
  Receive Date: 20051107
  Receipt Date: 20051107
  Transmission Date: 20060501
  Serious: Yes (Other)
  Sender: FDA-Public Use
  Company Number: None

PATIENT
  Sex: Male
  Weight: 63.5036 kg

DRUGS (3)
  1. ZYPREXA [Suspect]
     Indication: PSYCHOTIC DISORDER
     Dosage: 20 MG BEDTIME PO
     Route: 048
     Dates: start: 20050901, end: 20050921
  2. RISPERIDONE [Concomitant]
  3. OLANZAPINE [Concomitant]

REACTIONS (4)
  - BLOOD PRESSURE DECREASED [None]
  - GAIT DISTURBANCE [None]
  - SOMNOLENCE [None]
  - SYNCOPE [None]
